FAERS Safety Report 12807374 (Version 1)
Quarter: 2016Q4

REPORT INFORMATION
  Report Type: Spontaneous
  Country: US (occurrence: US)
  Receive Date: 20161004
  Receipt Date: 20161004
  Transmission Date: 20170207
  Serious: Yes (Hospitalization)
  Sender: FDA-Public Use
  Company Number: None

PATIENT
  Age: 81 Year
  Sex: Male
  Weight: 93.3 kg

DRUGS (3)
  1. RITUXIMAB (MOAB C2B8 ANTI CD20 CHIMERIC) [Concomitant]
     Active Substance: RITUXIMAB
     Dates: end: 20160920
  2. BENDAMUSTINE HYDROCHLORIDE. [Suspect]
     Active Substance: BENDAMUSTINE HYDROCHLORIDE
     Dates: end: 20160920
  3. VELCADE [Concomitant]
     Active Substance: BORTEZOMIB
     Dates: end: 20160927

REACTIONS (1)
  - Bacteriuria [None]

NARRATIVE: CASE EVENT DATE: 20160927
